FAERS Safety Report 10780125 (Version 1)
Quarter: 2015Q1

REPORT INFORMATION
  Report Type: Spontaneous
  Country: TR (occurrence: None)
  Receive Date: 20150206
  Receipt Date: 20150206
  Transmission Date: 20150721
  Serious: Yes (Hospitalization)
  Sender: FDA-Public Use
  Company Number: 2015JUB00032

PATIENT
  Age: 26 Year
  Sex: Female

DRUGS (1)
  1. CARBAMAZEPINE (CARBAMAZEPINE) UNKNOWN [Suspect]
     Active Substance: CARBAMAZEPINE
     Indication: EPILEPSY

REACTIONS (4)
  - Pathological fracture [None]
  - Osteoporosis [None]
  - Femoral neck fracture [None]
  - Groin pain [None]
